FAERS Safety Report 7928851 (Version 2)
Quarter: 2013Q3

REPORT INFORMATION
  Report Type: Report from Study
  Country: US (occurrence: US)
  Receive Date: 20110503
  Receipt Date: 20130731
  Transmission Date: 20140515
  Serious: Yes (Death, Hospitalization)
  Sender: FDA-Public Use
  Company Number: US-BRISTOL-MYERS SQUIBB COMPANY-15459076

PATIENT
  Age: 81 Year
  Sex: Male

DRUGS (24)
  1. IPILIMUMAB [Suspect]
     Indication: MALIGNANT MELANOMA
     Route: 042
     Dates: start: 20101012, end: 20101214
  2. CITALOPRAM [Concomitant]
     Dosage: 20MG TABLET
     Route: 048
  3. ENALAPRIL MALEATE [Concomitant]
     Dosage: 20MG TABLET.
     Route: 048
  4. ACETAMINOPHEN + HYDROCODONE [Concomitant]
     Indication: BREAKTHROUGH PAIN
     Dosage: 1DF:5-500MG?ACTAMINOPHEN 650MG Q6H PRN
     Route: 048
  5. OMEPRAZOLE [Concomitant]
     Dosage: 40MG CAP DELAYED RELEASED
     Route: 048
  6. ZOFRAN [Concomitant]
     Dosage: 8MG TABLET.
     Route: 048
  7. OXYCODONE [Concomitant]
     Indication: BREAKTHROUGH PAIN
     Dosage: 1DF=1-2 TABS OXYCODONE SR:40MG EVERY 4HRS,TAB Q8H
     Route: 048
  8. POLYETHYLENE GLYCOL [Concomitant]
     Indication: CONSTIPATION
     Dosage: 1-2 TIMES DAILY
     Route: 048
  9. TAMSULOSIN [Concomitant]
     Dosage: .4MG CAP SUSPENDED RELEASE
     Route: 048
  10. TRIAMTERENE [Concomitant]
     Dosage: 1DF: 37.5MG-25MG
     Route: 048
  11. HYDROCHLOROTHIAZIDE [Concomitant]
     Route: 048
  12. CALCIUM CARBONATE [Concomitant]
     Route: 048
  13. VITAMIN D3 [Concomitant]
     Dosage: 1DF=1000 UNITS,?400IU
     Route: 048
  14. SENNA [Concomitant]
     Indication: CONSTIPATION
     Dosage: PRN
     Route: 048
  15. TRIAMTERENE + HCTZ [Concomitant]
     Dosage: 1DF=37,5-25MG CAP.
     Route: 048
  16. COLACE [Concomitant]
     Route: 048
  17. SIMETHICONE [Concomitant]
     Indication: ABDOMINAL PAIN
     Dosage: QID
     Route: 048
  18. BISACODYL [Concomitant]
     Indication: CONSTIPATION
     Route: 048
  19. MIRALAX [Concomitant]
     Indication: CONSTIPATION
     Dosage: DAILY
     Route: 048
  20. DILAUDID [Concomitant]
  21. BUPIVACAINE [Concomitant]
     Dosage: BUPIVACAINE INFUSION EPIDURAL
  22. FONDAPARINUX SODIUM [Concomitant]
     Route: 058
  23. PREDNISONE [Concomitant]
     Dosage: PREDNISONE TAPER 30MG,20MG,10MG
  24. MIRTAZAPINE [Concomitant]
     Route: 048

REACTIONS (3)
  - Malignant neoplasm progression [Fatal]
  - Colitis [Recovered/Resolved]
  - Arthralgia [Recovered/Resolved with Sequelae]
